FAERS Safety Report 9203616 (Version 1)
Quarter: 2013Q1

REPORT INFORMATION
  Report Type: Spontaneous
  Country: US (occurrence: None)
  Receive Date: 20130329
  Receipt Date: 20130329
  Transmission Date: 20140127
  Serious: No
  Sender: FDA-Public Use
  Company Number: None

PATIENT
  Age: 69 Year
  Sex: Male
  Weight: 77.11 kg

DRUGS (1)
  1. ARTIFICIAL TEARS [Suspect]
     Dosage: 1 OR 2 DROPS AS NEEDED 5 TO 10 OPHTHALMIC
     Route: 047
     Dates: start: 20121101, end: 20130319

REACTIONS (2)
  - Eye disorder [None]
  - Eye irritation [None]
